FAERS Safety Report 24775396 (Version 1)
Quarter: 2024Q4

REPORT INFORMATION
  Report Type: Report from Study
  Country: US (occurrence: US)
  Receive Date: 20241226
  Receipt Date: 20241226
  Transmission Date: 20250115
  Serious: Yes (Hospitalization, Other)
  Sender: BAXTER
  Company Number: US-BAXTER-2024BAX029835

PATIENT
  Age: 39 Year
  Sex: Female
  Weight: 61.2 kg

DRUGS (3)
  1. DOXIL [Suspect]
     Active Substance: DOXORUBICIN HYDROCHLORIDE
     Indication: Triple negative breast cancer
     Dosage: 69.2 MG CYCLIC, Q28D
     Route: 042
     Dates: start: 20241122
  2. AVELUMAB [Suspect]
     Active Substance: AVELUMAB
     Indication: Triple negative breast cancer
     Dosage: 617 MG, Q2W
     Route: 042
     Dates: start: 20241122
  3. BINIMETINIB [Suspect]
     Active Substance: BINIMETINIB
     Indication: Triple negative breast cancer
     Dosage: 45 MG 2X/DAY
     Route: 048
     Dates: start: 20241108

REACTIONS (1)
  - Diarrhoea [Recovered/Resolved]

NARRATIVE: CASE EVENT DATE: 20241212
